FAERS Safety Report 6216633-6 (Version None)
Quarter: 2009Q2

REPORT INFORMATION
  Report Type: 
  Country: None (occurrence: None)
  Receive Date: 20090605
  Receipt Date: 20090528
  Transmission Date: 20091009
  Serious: Yes (Hospitalization)
  Sender: FDA-Public Use
  Company Number: PHBS2003JP13350

PATIENT
  Sex: Female
  Weight: 50 kg

DRUGS (4)
  1. GLEEVEC [Suspect]
     Indication: CHRONIC MYELOID LEUKAEMIA
     Dosage: 200 MG DAILY
     Route: 048
     Dates: start: 20030801
  2. GLEEVEC [Suspect]
     Dosage: 400 MG, QD
     Route: 048
     Dates: start: 20030828, end: 20090416
  3. ZYLORIC ^FAES^ [Concomitant]
  4. GASTER [Concomitant]

REACTIONS (2)
  - MALAISE [None]
  - PANCYTOPENIA [None]
